FAERS Safety Report 6627681-6 (Version None)
Quarter: 2010Q1

REPORT INFORMATION
  Report Type: 
  Country: None (occurrence: None)
  Receive Date: 20100311
  Receipt Date: 20100226
  Transmission Date: 20100710
  Serious: Yes (Other)
  Sender: FDA-Public Use
  Company Number: PHHY2010CA09356

PATIENT

DRUGS (3)
  1. ALISKIREN ALI+ [Suspect]
     Dosage: 300 MG, QD
  2. ACE INHIBITOR NOS [Concomitant]
  3. DIURETICS [Concomitant]

REACTIONS (1)
  - BLOOD SODIUM DECREASED [None]
